FAERS Safety Report 24448971 (Version 5)
Quarter: 2024Q4

REPORT INFORMATION
  Report Type: Spontaneous
  Country: FR (occurrence: FR)
  Receive Date: 20241017
  Receipt Date: 20241216
  Transmission Date: 20250115
  Serious: Yes (Death, Hospitalization)
  Sender: AUROBINDO
  Company Number: FR-PFIZER INC-PV202400127928

PATIENT
  Age: 59 Year
  Sex: Male
  Weight: 54 kg

DRUGS (11)
  1. CARBOPLATIN [Suspect]
     Active Substance: CARBOPLATIN
     Indication: Squamous cell carcinoma of head and neck
     Dosage: 2 MILLIGRAM, CYCLICAL (2 MG PER CALVERT, ON D1, D8, D15 EVERY 28 DAYS)
     Route: 042
     Dates: start: 20240913, end: 20240913
  2. CARBOPLATIN [Suspect]
     Active Substance: CARBOPLATIN
     Indication: Head and neck cancer
     Dosage: 2 MILLIGRAM, CYCLICAL (2 MG PER CALVERT, ON D1, D8, D15 EVERY 28 DAYS)
     Route: 042
     Dates: start: 20240920, end: 20240920
  3. PACLITAXEL [Suspect]
     Active Substance: PACLITAXEL
     Indication: Squamous cell carcinoma of head and neck
     Dosage: 80 MG/M2, CYCLICAL
     Route: 042
     Dates: start: 20240913, end: 20240913
  4. PACLITAXEL [Suspect]
     Active Substance: PACLITAXEL
     Indication: Head and neck cancer
     Dosage: 80 MG/M2, CYCLICAL
     Route: 042
     Dates: start: 20240920, end: 20240920
  5. CETUXIMAB [Suspect]
     Active Substance: CETUXIMAB
     Indication: Squamous cell carcinoma of head and neck
     Dosage: 500 MG/M2, CYCLICAL
     Route: 042
     Dates: start: 20240913, end: 20240913
  6. CETUXIMAB [Suspect]
     Active Substance: CETUXIMAB
     Indication: Head and neck cancer
  7. TISOTUMAB VEDOTIN [Suspect]
     Active Substance: TISOTUMAB VEDOTIN
     Indication: Squamous cell carcinoma of head and neck
     Dosage: 17 MILLIGRAM/KILOGRAM (ON D1 AND D15 OF EVERY 28 DAY CYCLE)
     Route: 042
     Dates: start: 20240521, end: 20240830
  8. DOLIPRANE [Concomitant]
     Active Substance: ACETAMINOPHEN
     Indication: Tumour pain
     Dosage: UNK
     Route: 065
     Dates: start: 20240913
  9. DULOXETINE [Concomitant]
     Active Substance: DULOXETINE
     Indication: Neuropathy peripheral
     Dosage: UNK
     Route: 065
     Dates: start: 20240705
  10. NICOTINE [Concomitant]
     Active Substance: NICOTINE
     Indication: Nicotine dependence
     Dosage: UNK, PATCH
     Route: 065
     Dates: start: 20240427
  11. XANAX [Concomitant]
     Active Substance: ALPRAZOLAM
     Indication: Insomnia
     Dosage: UNK
     Route: 065
     Dates: start: 20240705

REACTIONS (7)
  - Death [Fatal]
  - Malignant neoplasm progression [Fatal]
  - Stomatitis [Recovered/Resolved]
  - Oral fungal infection [Recovered/Resolved]
  - Fatigue [Recovered/Resolved]
  - Decreased appetite [Recovered/Resolved]
  - Off label use [Unknown]

NARRATIVE: CASE EVENT DATE: 20240925
